FAERS Safety Report 7223328-9 (Version None)
Quarter: 2011Q1

REPORT INFORMATION
  Report Type: 
  Country: None (occurrence: None)
  Receive Date: 20110112
  Receipt Date: 20100505
  Transmission Date: 20110831
  Serious: No
  Sender: FDA-Public Use
  Company Number: US-ALLERGAN-1005949US

PATIENT
  Age: 76 Year
  Sex: Male

DRUGS (3)
  1. FISH OIL [Concomitant]
     Dosage: UNK, TID
  2. OPTIVE [Concomitant]
     Dosage: UNK, TID
  3. RESTASIS [Suspect]
     Indication: DRY EYE
     Dosage: UNK

REACTIONS (1)
  - DRUG INEFFECTIVE [None]
